FAERS Safety Report 6244335-9 (Version None)
Quarter: 2009Q2

REPORT INFORMATION
  Report Type: 
  Country: None (occurrence: None)
  Receive Date: 20090625
  Receipt Date: 20090612
  Transmission Date: 20091009
  Serious: Yes (Hospitalization)
  Sender: FDA-Public Use
  Company Number: US-ROCHE-638273

PATIENT
  Age: 57 Year
  Sex: Female

DRUGS (10)
  1. PEGASYS [Suspect]
     Indication: HEPATITIS C
     Dosage: FORM: PRE-FILLED SYRINGE (PFS)
     Route: 058
  2. NOVOLIN [Concomitant]
  3. PREMARIN [Concomitant]
  4. NORVASC [Concomitant]
  5. LEXAPRO [Concomitant]
  6. CLONAZEPAM [Concomitant]
  7. ATENOLOL [Concomitant]
  8. RIBAVIRIN [Concomitant]
  9. PRILOSEC [Concomitant]
  10. LANTUS [Concomitant]

REACTIONS (4)
  - DISORIENTATION [None]
  - EATING DISORDER [None]
  - NAUSEA [None]
  - RED BLOOD CELL COUNT DECREASED [None]
